FAERS Safety Report 21772299 (Version 1)
Quarter: 2022Q4

REPORT INFORMATION
  Report Type: Report from Study
  Country: US (occurrence: US)
  Receive Date: 20221223
  Receipt Date: 20221223
  Transmission Date: 20230112
  Serious: Yes (Hospitalization)
  Sender: FDA-Public Use
  Company Number: US-002147023-NVSC2022US292424

PATIENT
  Sex: Female

DRUGS (1)
  1. TREPROSTINIL [Suspect]
     Active Substance: TREPROSTINIL
     Indication: Pulmonary arterial hypertension
     Dosage: 81 NG/KG/MIN, CONT
     Route: 042
     Dates: start: 20211021

REACTIONS (4)
  - Vascular device infection [Unknown]
  - Device alarm issue [Unknown]
  - Device physical property issue [Unknown]
  - Incorrect dose administered [Unknown]
